FAERS Safety Report 7832091-X (Version None)
Quarter: 2011Q4

REPORT INFORMATION
  Report Type: 
  Country: None (occurrence: None)
  Receive Date: 20111022
  Receipt Date: 20110729
  Transmission Date: 20120403
  Serious: Yes (Hospitalization, Other)
  Sender: FDA-Public Use
  Company Number: US-BAYER-2011-036278

PATIENT
  Age: 77 Year
  Sex: Male

DRUGS (5)
  1. NEXIUM [Concomitant]
  2. XIFAXAN [Concomitant]
     Indication: AMMONIA ABNORMAL
     Dosage: UNK
  3. SORAFENIB (RAF KINASE INHIBITOR) [Suspect]
     Indication: HEPATIC NEOPLASM MALIGNANT
     Dosage: 200 MG, BID
     Route: 048
     Dates: start: 20110406, end: 20110520
  4. SPIRONOLACTONE [Concomitant]
  5. LASIX [Concomitant]

REACTIONS (8)
  - DIARRHOEA [None]
  - BLOOD COUNT ABNORMAL [None]
  - LOCAL SWELLING [None]
  - ABDOMINAL DISTENSION [None]
  - INFECTION [None]
  - WHITE BLOOD CELL DISORDER [None]
  - ERUCTATION [None]
  - FATIGUE [None]
